FAERS Safety Report 5239437-X (Version None)
Quarter: 2007Q1

REPORT INFORMATION
  Report Type: 
  Country: None (occurrence: None)
  Receive Date: 20070216
  Receipt Date: 20070205
  Transmission Date: 20070707
  Serious: Yes (Hospitalization)
  Sender: FDA-Public Use
  Company Number: NSADSS2001011578

PATIENT
  Sex: Male
  Weight: 120 kg

DRUGS (4)
  1. LEVOFLOXACIN [Suspect]
     Indication: UPPER RESPIRATORY TRACT INFECTION
     Route: 048
     Dates: start: 20010410, end: 20010412
  2. LORAZEPAM [Concomitant]
     Indication: SEDATION
     Route: 048
  3. TYLENOL W/ CODEINE NO. 2 [Concomitant]
     Indication: PAIN
     Route: 048
  4. FLONASE [Concomitant]
     Indication: DRUG USE FOR UNKNOWN INDICATION
     Route: 045

REACTIONS (2)
  - HEPATIC FAILURE [None]
  - SLEEP APNOEA SYNDROME [None]
